FAERS Safety Report 7970437-2 (Version None)
Quarter: 2011Q4

REPORT INFORMATION
  Report Type: 
  Country: None (occurrence: None)
  Receive Date: 20111212
  Receipt Date: 20111130
  Transmission Date: 20120403
  Serious: Yes (Hospitalization, Other)
  Sender: FDA-Public Use
  Company Number: PHEH2011US06387

PATIENT
  Sex: Male
  Weight: 32.1 kg

DRUGS (6)
  1. EXJADE [Suspect]
     Indication: SICKLE CELL ANAEMIA
     Dosage: 625 MG, DAILY
     Route: 048
     Dates: start: 20110728
  2. ACETAMINOPHEN [Concomitant]
  3. ROCEPHIN [Concomitant]
  4. ACETAMINOPHEN [Concomitant]
  5. EXJADE [Suspect]
     Indication: IRON OVERLOAD
     Dosage: 625 MG, DAILY
     Route: 048
     Dates: start: 20110820, end: 20111002
  6. DULCOLAX [Concomitant]

REACTIONS (13)
  - PANCREATITIS [None]
  - LIPASE INCREASED [None]
  - ABDOMINAL PAIN [None]
  - RASH MACULO-PAPULAR [None]
  - BLOOD AMYLASE INCREASED [None]
  - PRURITUS [None]
  - PAIN IN EXTREMITY [None]
  - LIVER FUNCTION TEST ABNORMAL [None]
  - SERUM FERRITIN INCREASED [None]
  - ASPARTATE AMINOTRANSFERASE INCREASED [None]
  - ALANINE AMINOTRANSFERASE INCREASED [None]
  - SICKLE CELL ANAEMIA WITH CRISIS [None]
  - PYREXIA [None]
